FAERS Safety Report 20660090 (Version 1)
Quarter: 2022Q1

REPORT INFORMATION
  Report Type: Spontaneous
  Country: US (occurrence: None)
  Receive Date: 20220331
  Receipt Date: 20220331
  Transmission Date: 20220423
  Serious: Yes (Other)
  Sender: FDA-Public Use
  Company Number: None

PATIENT
  Age: 74 Year
  Sex: Female
  Weight: 62.1 kg

DRUGS (10)
  1. PREDNISOLONE ACETATE [Suspect]
     Active Substance: PREDNISOLONE ACETATE
     Indication: Retinal haemorrhage
     Dosage: OTHER QUANTITY : 1 DROP(S);?FREQUENCY : 4 TIMES A DAY;?
     Route: 047
     Dates: start: 20220322, end: 20220329
  2. AMLODIPINE [Concomitant]
     Active Substance: AMLODIPINE BESYLATE
  3. FOSINOPRIL [Concomitant]
     Active Substance: FOSINOPRIL
  4. TRIAMTERENE AND HYDROCHLOROTHIAZIDE [Concomitant]
     Active Substance: HYDROCHLOROTHIAZIDE\TRIAMTERENE
  5. METOPROLOL [Concomitant]
     Active Substance: METOPROLOL
  6. CRESTOR [Concomitant]
  7. XANAX [Concomitant]
     Active Substance: ALPRAZOLAM
  8. PEPCID VEGAN [Concomitant]
  9. VITAMINS [Concomitant]
     Active Substance: VITAMINS
  10. ACETAMINOPHEN [Concomitant]
     Active Substance: ACETAMINOPHEN

REACTIONS (5)
  - Eye pain [None]
  - Blood pressure increased [None]
  - Eye swelling [None]
  - Therapy cessation [None]
  - Instillation site pain [None]

NARRATIVE: CASE EVENT DATE: 20220329
